FAERS Safety Report 24969434 (Version 1)
Quarter: 2025Q1

REPORT INFORMATION
  Report Type: Report from Study
  Country: IN (occurrence: IN)
  Receive Date: 20250214
  Receipt Date: 20250214
  Transmission Date: 20250408
  Serious: Yes (Other)
  Sender: ROCHE
  Company Number: IN-ROCHE-3024734

PATIENT
  Age: 70 Year
  Sex: Female

DRUGS (6)
  1. TECENTRIQ [Suspect]
     Active Substance: ATEZOLIZUMAB
     Indication: Lung adenocarcinoma
     Route: 042
  2. TECENTRIQ [Suspect]
     Active Substance: ATEZOLIZUMAB
     Route: 042
     Dates: start: 20211118
  3. TECENTRIQ [Suspect]
     Active Substance: ATEZOLIZUMAB
     Route: 042
     Dates: start: 20211213
  4. TECENTRIQ [Suspect]
     Active Substance: ATEZOLIZUMAB
     Route: 042
  5. TECENTRIQ [Suspect]
     Active Substance: ATEZOLIZUMAB
     Route: 042
     Dates: start: 20211213
  6. TECENTRIQ [Suspect]
     Active Substance: ATEZOLIZUMAB
     Route: 042
     Dates: start: 20211213

REACTIONS (30)
  - Cough [Unknown]
  - Immune system disorder [Unknown]
  - Haemoglobin decreased [Unknown]
  - Anaemia [Unknown]
  - Asthenia [Unknown]
  - Neoplasm [Unknown]
  - Off label use [Unknown]
  - Rash [Unknown]
  - Blood creatinine increased [Unknown]
  - Mucosal toxicity [Unknown]
  - Lung neoplasm [Unknown]
  - Blood thyroid stimulating hormone increased [Unknown]
  - Portal vein thrombosis [Unknown]
  - Haemorrhoids [Unknown]
  - Post procedural infection [Unknown]
  - Portal vein thrombosis [Unknown]
  - Abdominal pain upper [Unknown]
  - Hepatic cirrhosis [Unknown]
  - General physical health deterioration [Unknown]
  - Blood urea increased [Unknown]
  - Blood creatinine increased [Unknown]
  - Immune-mediated adverse reaction [Unknown]
  - Blood thyroid stimulating hormone decreased [Unknown]
  - Thyroxine free increased [Unknown]
  - Carcinoembryonic antigen increased [Unknown]
  - Glomerular filtration rate decreased [Unknown]
  - Pulmonary mass [Unknown]
  - Lymphadenopathy [Unknown]
  - Positron emission tomogram abnormal [Unknown]
  - Tumour thrombosis [Unknown]

NARRATIVE: CASE EVENT DATE: 20230105
